FAERS Safety Report 8802481 (Version 1)
Quarter: 2012Q4

REPORT INFORMATION
  Report Type: 
  Country: PH (occurrence: PH)
  Receive Date: 20120921
  Receipt Date: 20120921
  Transmission Date: 20130627
  Serious: Yes (Death, Other)
  Sender: FDA-Public Use
  Company Number: PHHO2006PH02897

PATIENT
  Sex: Male

DRUGS (1)
  1. GLIVEC [Suspect]
     Dates: start: 20050202, end: 20051027

REACTIONS (3)
  - Death [Fatal]
  - Blast crisis in myelogenous leukaemia [Unknown]
  - Drug ineffective [Unknown]
